FAERS Safety Report 5649654-2 (Version None)
Quarter: 2008Q1

REPORT INFORMATION
  Report Type: 
  Country: None (occurrence: None)
  Receive Date: 20080304
  Receipt Date: 20080221
  Transmission Date: 20080703
  Serious: Yes (Hospitalization)
  Sender: FDA-Public Use
  Company Number: JP-PFIZER INC-2008011487

PATIENT
  Age: 62 Year
  Sex: Female

DRUGS (7)
  1. AMLODIN [Suspect]
     Route: 048
  2. AMLODIN [Suspect]
     Route: 048
     Dates: start: 20060929, end: 20071108
  3. OLMESARTAN MEDOXOMIL [Suspect]
     Indication: ESSENTIAL HYPERTENSION
     Route: 048
     Dates: start: 20060914, end: 20071108
  4. OLMESARTAN MEDOXOMIL [Suspect]
  5. TENORMIN [Suspect]
     Indication: ESSENTIAL HYPERTENSION
     Route: 048
     Dates: start: 20070301, end: 20071108
  6. MUCOSTA [Concomitant]
     Route: 048
     Dates: start: 20070831, end: 20071108
  7. DEPAS [Concomitant]
     Route: 048
     Dates: start: 20070326, end: 20071108

REACTIONS (2)
  - DIZZINESS [None]
  - FEMUR FRACTURE [None]
